FAERS Safety Report 6103612-2 (Version None)
Quarter: 2009Q1

REPORT INFORMATION
  Report Type: 
  Country: None (occurrence: None)
  Receive Date: 20090302
  Receipt Date: 20090216
  Transmission Date: 20090719
  Serious: Yes (Hospitalization)
  Sender: FDA-Public Use
  Company Number: 09-015

PATIENT
  Age: 14 Month

DRUGS (3)
  1. CEFUROXIME [Suspect]
     Indication: INFECTION
     Dosage: UNK, UNK AND IV
     Route: 042
  2. CEFOTAXIME SODIUM [Suspect]
     Indication: MENINGITIS
     Dosage: UNK UNK AND IV
     Route: 042
  3. CEFTRIAXONE [Suspect]
     Indication: MENINGITIS
     Dosage: UNK UNK AND IV
     Route: 042

REACTIONS (10)
  - BLOOD CULTURE POSITIVE [None]
  - CSF CULTURE POSITIVE [None]
  - ENCEPHALITIS [None]
  - FONTANELLE BULGING [None]
  - INTRACRANIAL PRESSURE INCREASED [None]
  - MENINGITIS BACTERIAL [None]
  - MULTI-ORGAN DISORDER [None]
  - MULTIPLE-DRUG RESISTANCE [None]
  - PNEUMOCOCCAL SEPSIS [None]
  - SEPTIC SHOCK [None]
